FAERS Safety Report 8241849-7 (Version None)
Quarter: 2012Q1

REPORT INFORMATION
  Report Type: 
  Country: None (occurrence: None)
  Receive Date: 20120328
  Receipt Date: 20120319
  Transmission Date: 20120608
  Serious: Yes (Other)
  Sender: FDA-Public Use
  Company Number: US-ASTRAZENECA-2012SE18564

PATIENT

DRUGS (4)
  1. TAGAMENT [Concomitant]
  2. PROTONIX [Concomitant]
  3. NEXIUM [Suspect]
     Route: 048
  4. PRILOSEC [Concomitant]

REACTIONS (2)
  - DUODENAL ULCER [None]
  - BILE DUCT CANCER STAGE III [None]
